FAERS Safety Report 4667796-5 (Version None)
Quarter: 2005Q2

REPORT INFORMATION
  Report Type: 
  Country: None (occurrence: None)
  Receive Date: 20050520
  Receipt Date: 20050405
  Transmission Date: 20051028
  Serious: Yes (Life-Threatening, Hospitalization)
  Sender: FDA-Public Use
  Company Number: DE-GLAXOSMITHKLINE-D0046296A

PATIENT
  Age: 26 Year
  Sex: Female

DRUGS (3)
  1. LAMICTAL [Suspect]
     Indication: EPILEPSY
     Dosage: 25MG SEE DOSAGE TEXT
     Route: 048
     Dates: start: 20050316, end: 20050402
  2. ERGENYL CHRONO [Suspect]
     Indication: EPILEPSY
     Dosage: 300MG TWICE PER DAY
     Route: 048
     Dates: start: 20050301
  3. CARBAMAZEPINE [Concomitant]
     Indication: EPILEPSY
     Route: 065
     Dates: end: 20050101

REACTIONS (13)
  - ANAPHYLACTIC REACTION [None]
  - BLISTER [None]
  - CONFUSIONAL STATE [None]
  - CONJUNCTIVITIS [None]
  - DYSPHAGIA [None]
  - ERYTHEMA [None]
  - EXANTHEM [None]
  - EYE DISCHARGE [None]
  - EYE SWELLING [None]
  - FACE OEDEMA [None]
  - PAIN [None]
  - SKIN EXFOLIATION [None]
  - TOXIC EPIDERMAL NECROLYSIS [None]
